FAERS Safety Report 4638795-4 (Version None)
Quarter: 2005Q2

REPORT INFORMATION
  Report Type: 
  Country: None (occurrence: None)
  Receive Date: 20050419
  Receipt Date: 20050405
  Transmission Date: 20051028
  Serious: Yes (Other)
  Sender: FDA-Public Use
  Company Number: 200512787US

PATIENT
  Sex: Female

DRUGS (5)
  1. KETEK [Suspect]
     Indication: BRONCHITIS
     Route: 048
     Dates: start: 20050404
  2. KETEK [Suspect]
     Indication: PHARYNGITIS STREPTOCOCCAL
     Route: 048
     Dates: start: 20050404
  3. KETEK [Suspect]
     Indication: SINUSITIS
     Route: 048
     Dates: start: 20050404
  4. TYLENOL (CAPLET) [Concomitant]
     Dosage: DOSE: NOT PROVIDED
  5. TUSSI 12 D [Concomitant]
     Dosage: DOSE: NOT PROVIDED

REACTIONS (5)
  - ACTIVITIES OF DAILY LIVING IMPAIRED [None]
  - DYSGRAPHIA [None]
  - HALLUCINATION, AUDITORY [None]
  - HALLUCINATION, VISUAL [None]
  - VISION BLURRED [None]
